FAERS Safety Report 12747405 (Version 1)
Quarter: 2016Q3

REPORT INFORMATION
  Report Type: Spontaneous
  Country: US (occurrence: US)
  Receive Date: 20160915
  Receipt Date: 20160915
  Transmission Date: 20161109
  Serious: No
  Sender: FDA-Public Use
  Company Number: US-SA-2016SA042473

PATIENT
  Sex: Female

DRUGS (1)
  1. TUBERSOL [Suspect]
     Active Substance: TUBERCULIN PURIFIED PROTEIN DERIVATIVE
     Indication: TUBERCULIN TEST
     Route: 065
     Dates: start: 20160210, end: 20160210

REACTIONS (3)
  - Urticaria [Not Recovered/Not Resolved]
  - Pregnancy [Unknown]
  - Polymorphic eruption of pregnancy [Unknown]

NARRATIVE: CASE EVENT DATE: 20160210
